FAERS Safety Report 25967645 (Version 2)
Quarter: 2025Q4

REPORT INFORMATION
  Report Type: Spontaneous
  Country: CA (occurrence: CA)
  Receive Date: 20251028
  Receipt Date: 20251209
  Transmission Date: 20260117
  Serious: Yes (Hospitalization, Other)
  Sender: APOTEX
  Company Number: CA-APOTEX-2023AP007031

PATIENT
  Age: 35 Year
  Sex: Female

DRUGS (10)
  1. RANITIDINE [Suspect]
     Active Substance: RANITIDINE
     Indication: Chronic spontaneous urticaria
     Dosage: 150 MILLIGRAM, BID
  2. RANITIDINE [Suspect]
     Active Substance: RANITIDINE
     Dosage: 2 EVERY 1 DAYS
  3. MONTELUKAST [Suspect]
     Active Substance: MONTELUKAST
     Indication: Chronic spontaneous urticaria
     Dosage: 10 MILLIGRAM, QD
     Route: 065
  4. OMALIZUMAB [Suspect]
     Active Substance: OMALIZUMAB
     Indication: Chronic spontaneous urticaria
     Dosage: 300 MILLIGRAM
  5. OMALIZUMAB [Suspect]
     Active Substance: OMALIZUMAB
     Dosage: 150 MILLIGRAM
  6. OMALIZUMAB [Suspect]
     Active Substance: OMALIZUMAB
     Dosage: 450 MILLIGRAM
  7. OMALIZUMAB [Suspect]
     Active Substance: OMALIZUMAB
     Dosage: UNK
  8. OMALIZUMAB [Suspect]
     Active Substance: OMALIZUMAB
     Dosage: UNK
     Route: 065
  9. OMALIZUMAB [Suspect]
     Active Substance: OMALIZUMAB
     Dosage: 300 MILLIGRAM, 1 EVERY 4 WEEKS
  10. MONTELUKAST SODIUM [Suspect]
     Active Substance: MONTELUKAST SODIUM
     Indication: Chronic spontaneous urticaria
     Dosage: 1 EVERY 1 DAYS
     Route: 065

REACTIONS (18)
  - Nasopharyngitis [Not Recovered/Not Resolved]
  - Infection parasitic [Not Recovered/Not Resolved]
  - Chest discomfort [Not Recovered/Not Resolved]
  - Chest pain [Not Recovered/Not Resolved]
  - Erythema [Not Recovered/Not Resolved]
  - Feeling abnormal [Not Recovered/Not Resolved]
  - Incorrect dose administered [Not Recovered/Not Resolved]
  - Stress [Not Recovered/Not Resolved]
  - Swelling face [Not Recovered/Not Resolved]
  - Malaise [Not Recovered/Not Resolved]
  - Rash erythematous [Not Recovered/Not Resolved]
  - Malaria [Not Recovered/Not Resolved]
  - Urticaria [Not Recovered/Not Resolved]
  - Pruritus [Not Recovered/Not Resolved]
  - Rash [Not Recovered/Not Resolved]
  - Arthralgia [Not Recovered/Not Resolved]
  - Drug ineffective [Not Recovered/Not Resolved]
  - Therapy partial responder [Not Recovered/Not Resolved]
